FAERS Safety Report 19804418 (Version 2)
Quarter: 2022Q3

REPORT INFORMATION
  Report Type: Spontaneous
  Country: US (occurrence: None)
  Receive Date: 20210908
  Receipt Date: 20220907
  Transmission Date: 20221027
  Serious: No
  Sender: FDA-Public Use
  Company Number: US-FARMAPROD-202106-0884

PATIENT
  Age: 31 Year
  Sex: Female

DRUGS (4)
  1. OXERVATE [Suspect]
     Active Substance: CENEGERMIN-BKBJ
     Indication: Neurotrophic keratopathy
     Route: 047
     Dates: start: 20210427
  2. XIIDRA [Concomitant]
     Active Substance: LIFITEGRAST
     Dosage: DROPERETTE
  3. RETINOL EYE CREAM [Concomitant]
     Route: 047
  4. SERUM TEARS [Concomitant]

REACTIONS (5)
  - Product storage error [Unknown]
  - Eye pain [Unknown]
  - Eyelid irritation [Unknown]
  - Eyelid pain [Unknown]
  - Product administration error [Unknown]

NARRATIVE: CASE EVENT DATE: 20210605
